FAERS Safety Report 11758856 (Version 2)
Quarter: 2016Q1

REPORT INFORMATION
  Report Type: Spontaneous
  Country: US (occurrence: US)
  Receive Date: 20151120
  Receipt Date: 20160215
  Transmission Date: 20160525
  Serious: Yes (Death, Other)
  Sender: FDA-Public Use
  Company Number: US-PFIZER INC-2015389943

PATIENT
  Age: 35 Year
  Sex: Female

DRUGS (2)
  1. LYRICA [Interacting]
     Active Substance: PREGABALIN
     Dosage: 600 MG, UNK
  2. LYRICA [Suspect]
     Active Substance: PREGABALIN
     Dosage: 300MG CAPSULES, UNKNOWN FREQUENCY (AMOUNT OF CAPSULES)

REACTIONS (3)
  - Overdose [Fatal]
  - Drug abuse [Unknown]
  - Drug interaction [Fatal]
